FAERS Safety Report 8250798-X (Version None)
Quarter: 2012Q2

REPORT INFORMATION
  Report Type: 
  Country: None (occurrence: None)
  Receive Date: 20120402
  Receipt Date: 20120319
  Transmission Date: 20120825
  Serious: Yes (Hospitalization)
  Sender: FDA-Public Use
  Company Number: US-ROCHE-1040342

PATIENT
  Age: 28 Year
  Sex: Female
  Weight: 78 kg

DRUGS (3)
  1. AVASTIN [Suspect]
     Indication: BREAST CANCER
     Dosage: OVER 30-90 MINUTES ON DAY 1 OF WEEKS 1,3,5,7,9,11,13,15 AND 17.
     Dates: start: 20110916, end: 20120111
  2. CYCLOPHOSPHAMIDE [Suspect]
     Indication: BREAST CANCER
     Dosage: OVER 5-30 MINUTES ON DAY 1 OF WEEKS 13, 15, 17 AND 19
     Route: 042
     Dates: start: 20110916, end: 20120111
  3. DOXORUBICIN HCL [Suspect]
     Indication: BREAST CANCER
     Dosage: OVER 5-10 MINUTES ON DAY 1 OF WEEKS 13, 15, 17 AND 19
     Route: 042
     Dates: start: 20110916, end: 20120111

REACTIONS (2)
  - ATRIAL THROMBOSIS [None]
  - DEVICE RELATED INFECTION [None]
